FAERS Safety Report 10364738 (Version 1)
Quarter: 2014Q3

REPORT INFORMATION
  Report Type: Spontaneous
  Country: US (occurrence: US)
  Receive Date: 20140806
  Receipt Date: 20140806
  Transmission Date: 20150326
  Serious: Yes (Hospitalization)
  Sender: FDA-Public Use
  Company Number: US-JNJFOC-20140719480

PATIENT
  Age: 79 Year
  Sex: Female
  Weight: 68.04 kg

DRUGS (6)
  1. AVAPRO [Concomitant]
     Active Substance: IRBESARTAN
     Route: 048
  2. JANUVIA [Concomitant]
     Active Substance: SITAGLIPTIN PHOSPHATE
     Indication: TYPE 2 DIABETES MELLITUS
     Route: 048
  3. XANAX [Concomitant]
     Active Substance: ALPRAZOLAM
     Indication: ANXIETY
     Route: 048
     Dates: start: 2011
  4. VITAMINS [Concomitant]
     Active Substance: VITAMINS
  5. INVOKANA [Suspect]
     Active Substance: CANAGLIFLOZIN
     Indication: TYPE 2 DIABETES MELLITUS
     Route: 048
     Dates: start: 201312, end: 201312
  6. PLAVIX [Concomitant]
     Active Substance: CLOPIDOGREL BISULFATE
     Indication: THROMBOSIS PROPHYLAXIS
     Route: 048

REACTIONS (8)
  - Bladder spasm [Recovered/Resolved]
  - Nausea [Recovered/Resolved]
  - Weight decreased [Unknown]
  - Urine output increased [Recovered/Resolved]
  - Food poisoning [Recovered/Resolved]
  - Fatigue [Recovered/Resolved]
  - Myalgia [Recovered/Resolved]
  - Dizziness [Recovered/Resolved]

NARRATIVE: CASE EVENT DATE: 201312
